FAERS Safety Report 20535843 (Version 1)
Quarter: 2022Q1

REPORT INFORMATION
  Report Type: Spontaneous
  Country: MX (occurrence: MX)
  Receive Date: 20220302
  Receipt Date: 20220302
  Transmission Date: 20220423
  Serious: Yes (Other)
  Sender: FDA-Public Use
  Company Number: MX-BAYER-2021A252538

PATIENT
  Age: 70 Year
  Sex: Female
  Weight: 75 kg

DRUGS (1)
  1. XARELTO [Suspect]
     Active Substance: RIVAROXABAN
     Indication: Cardiovascular disorder
     Dosage: 0.5 DF, QD
     Route: 048
     Dates: start: 20211006

REACTIONS (3)
  - Pulmonary thrombosis [Unknown]
  - Wrong technique in product usage process [Unknown]
  - Product prescribing issue [Unknown]

NARRATIVE: CASE EVENT DATE: 20210101
